FAERS Safety Report 12429642 (Version 1)
Quarter: 2016Q2

REPORT INFORMATION
  Report Type: Spontaneous
  Country: CH (occurrence: CH)
  Receive Date: 20160602
  Receipt Date: 20160602
  Transmission Date: 20160815
  Serious: Yes (Hospitalization)
  Sender: FDA-Public Use
  Company Number: CH-BAYER-2016-099171

PATIENT
  Age: 29 Year
  Sex: Female
  Weight: 50 kg

DRUGS (3)
  1. FONDAPARINUX [Interacting]
     Active Substance: FONDAPARINUX
     Dosage: 2.5 MG, UNK
     Route: 058
  2. FONDAPARINUX [Interacting]
     Active Substance: FONDAPARINUX
     Dosage: 5 MG, QD
  3. ACETYLSALICYLIC ACID({=100 MG) [Suspect]
     Active Substance: ASPIRIN
     Dosage: 100 MG, UNK
     Route: 048

REACTIONS (5)
  - Maternal exposure during pregnancy [None]
  - Placental insufficiency [None]
  - Drug administration error [None]
  - Labelled drug-drug interaction medication error [None]
  - Premature labour [None]
